FAERS Safety Report 8535491-8 (Version None)
Quarter: 2012Q3

REPORT INFORMATION
  Report Type: 
  Country: None (occurrence: None)
  Receive Date: 20120725
  Receipt Date: 20120718
  Transmission Date: 20120928
  Serious: Yes (Other)
  Sender: FDA-Public Use
  Company Number: GB-009507513-1207GBR006828

PATIENT

DRUGS (2)
  1. ANTIMICROBIAL (UNSPECIFIED) [Concomitant]
  2. NEXPLANON [Suspect]
     Indication: CONTRACEPTION
     Dosage: 1 DF, UNK
     Route: 059
     Dates: start: 20110601, end: 20120705

REACTIONS (1)
  - SKIN NECROSIS [None]
